FAERS Safety Report 14518346 (Version 1)
Quarter: 2018Q1

REPORT INFORMATION
  Report Type: Spontaneous
  Country: US (occurrence: US)
  Receive Date: 20180212
  Receipt Date: 20180212
  Transmission Date: 20180509
  Serious: Yes (Other)
  Sender: FDA-Public Use
  Company Number: US-THE MENTHOLATUM COMPANY-2041786

PATIENT
  Age: 24 Year
  Sex: Male
  Weight: 88.18 kg

DRUGS (1)
  1. RED CROSS TOOTHACHE [Suspect]
     Active Substance: EUGENOL
     Indication: TOOTHACHE
     Route: 004
     Dates: start: 20180103, end: 20180103

REACTIONS (1)
  - Chemical burn [None]

NARRATIVE: CASE EVENT DATE: 20180103
